FAERS Safety Report 9669877 (Version 1)
Quarter: 2013Q4

REPORT INFORMATION
  Report Type: Spontaneous
  Country: US (occurrence: None)
  Receive Date: 20131101
  Receipt Date: 20131101
  Transmission Date: 20140711
  Serious: Yes (Death)
  Sender: FDA-Public Use
  Company Number: AUR-APL-2013-09067

PATIENT
  Age: 69 Year
  Sex: Female

DRUGS (7)
  1. LEVETIRACETAM [Suspect]
     Indication: STATUS EPILEPTICUS
  2. PHENYTOIN [Suspect]
     Indication: STATUS EPILEPTICUS
  3. LORAZEPAM [Suspect]
     Indication: STATUS EPILEPTICUS
  4. PHENOBARBITAL (PHENOBARBITAL) [Concomitant]
  5. NITROPRUSSIDE (NITROPRUSSIDE) [Concomitant]
  6. NOREPINEPHRINE (NOREPINEPHRINE) [Concomitant]
  7. PROPOFOL (PROPOFOL) [Concomitant]

REACTIONS (1)
  - Drug ineffective [None]
